FAERS Safety Report 7403192 (Version 2)
Quarter: 2016Q1

REPORT INFORMATION
  Report Type: Spontaneous
  Country: US (occurrence: US)
  Receive Date: 20100528
  Receipt Date: 20160302
  Transmission Date: 20160526
  Serious: Yes (Hospitalization)
  Sender: FDA-Public Use
  Company Number: US-ASTRAZENECA-2010SE00401

PATIENT
  Age: 38 Year
  Sex: Female
  Weight: 56.2 kg

DRUGS (5)
  1. PRILOSEC [Suspect]
     Active Substance: OMEPRAZOLE MAGNESIUM
     Indication: GASTROOESOPHAGEAL REFLUX DISEASE
     Route: 048
     Dates: end: 2009
  2. FENERGEN [Concomitant]
     Indication: OBSESSIVE-COMPULSIVE DISORDER
     Route: 048
     Dates: start: 2001
  3. KLONOPIN [Interacting]
     Active Substance: CLONAZEPAM
     Route: 065
  4. ATENOLOL. [Concomitant]
     Active Substance: ATENOLOL
  5. PAXIL [Concomitant]
     Active Substance: PAROXETINE HYDROCHLORIDE
     Indication: OBSESSIVE-COMPULSIVE DISORDER
     Route: 048
     Dates: start: 2001

REACTIONS (8)
  - Palpitations [Unknown]
  - Blood iron decreased [Unknown]
  - Drug interaction [Unknown]
  - Syncope [Unknown]
  - Heart rate increased [Unknown]
  - Drug withdrawal syndrome [Unknown]
  - Limb discomfort [Unknown]
  - Nausea [Unknown]

NARRATIVE: CASE EVENT DATE: 2009
